FAERS Safety Report 6824089-5 (Version None)
Quarter: 2010Q3

REPORT INFORMATION
  Report Type: 
  Country: None (occurrence: None)
  Receive Date: 20100708
  Receipt Date: 20061006
  Transmission Date: 20110219
  Serious: No
  Sender: FDA-Public Use
  Company Number: US-PFIZER INC-2006125964

PATIENT
  Sex: Male
  Weight: 79.38 kg

DRUGS (10)
  1. CHANTIX [Suspect]
     Indication: SMOKING CESSATION THERAPY
     Dates: start: 20060901
  2. ZOCOR [Concomitant]
  3. COZAAR [Concomitant]
  4. GLYBURIDE [Concomitant]
  5. HYDRALAZINE HCL [Concomitant]
  6. ADVAIR DISKUS 100/50 [Concomitant]
  7. MAGNESIUM OXIDE [Concomitant]
  8. ALL OTHER THERAPEUTIC PRODUCTS [Concomitant]
  9. ACETYLSALICYLIC ACID [Concomitant]
  10. VERAPAMIL [Concomitant]

REACTIONS (2)
  - ABDOMINAL SYMPTOM [None]
  - CONSTIPATION [None]
